FAERS Safety Report 8592490-8 (Version None)
Quarter: 2012Q3

REPORT INFORMATION
  Report Type: 
  Country: None (occurrence: None)
  Receive Date: 20120814
  Receipt Date: 20120801
  Transmission Date: 20120928
  Serious: Yes (Hospitalization, Other)
  Sender: FDA-Public Use
  Company Number: US-009507513-1208USA000642

PATIENT

DRUGS (13)
  1. ONDANSETRON [Concomitant]
     Dosage: UNK MG, UNK
     Route: 042
     Dates: start: 20120720
  2. PLACEBO [Suspect]
     Indication: ACUTE CORONARY SYNDROME
     Dosage: UNK
     Route: 048
     Dates: start: 20070804
  3. ASPIRIN [Concomitant]
     Dosage: UNK MG, UNK
     Route: 048
     Dates: start: 20120718
  4. CLOPIDOGREL [Concomitant]
     Dosage: UNK MG, UNK
     Route: 048
     Dates: start: 20070806
  5. MORPHINE [Concomitant]
     Dosage: 2-4 MG DAILY
     Route: 042
     Dates: start: 20120720, end: 20120731
  6. PLACEBO [Suspect]
     Indication: ACUTE CORONARY SYNDROME
     Dosage: UNK
     Route: 048
     Dates: start: 20070804
  7. METOPROLOL [Concomitant]
     Dosage: UNK MG, UNK
     Route: 048
     Dates: start: 20070806
  8. BLINDED POST TRIAL THERAPY [Suspect]
     Indication: ACUTE CORONARY SYNDROME
     Dosage: UNK
     Route: 048
     Dates: start: 20070804
  9. SIMVASTATIN [Suspect]
     Indication: ACUTE CORONARY SYNDROME
     Dosage: UNK
     Route: 048
     Dates: start: 20070804
  10. BLINDED EZETIMIBE (+) SIMVASTATIN [Suspect]
     Indication: ACUTE CORONARY SYNDROME
     Dosage: UNK
     Route: 048
     Dates: start: 20070804
  11. RAMIPRIL [Concomitant]
     Dosage: UNK MG, UNK
     Route: 048
     Dates: start: 20100721
  12. BLINDED PRE TRIAL THERAPY [Suspect]
     Indication: ACUTE CORONARY SYNDROME
     Dosage: UNK
     Route: 048
     Dates: start: 20070804
  13. BLINDED THERAPY [Suspect]
     Indication: ACUTE CORONARY SYNDROME
     Dosage: UNK
     Route: 048
     Dates: start: 20070804

REACTIONS (5)
  - BACTERAEMIA [None]
  - PYELONEPHRITIS ACUTE [None]
  - PLEURAL EFFUSION [None]
  - MESENTERIC NEOPLASM [None]
  - DISSEMINATED INTRAVASCULAR COAGULATION [None]
